FAERS Safety Report 19030508 (Version 2)
Quarter: 2021Q1

REPORT INFORMATION
  Report Type: Spontaneous
  Country: DE (occurrence: DE)
  Receive Date: 20210319
  Receipt Date: 20210326
  Transmission Date: 20210420
  Serious: Yes (Other)
  Sender: FDA-Public Use
  Company Number: NVSC2021DE060675

PATIENT
  Sex: Female

DRUGS (2)
  1. ACTIVELLE [Concomitant]
     Active Substance: ESTRADIOL\NORETHINDRONE ACETATE
     Indication: PRODUCT USED FOR UNKNOWN INDICATION
     Dosage: UNK
     Route: 065
  2. ACLASTA [Suspect]
     Active Substance: ZOLEDRONIC ACID
     Indication: PRODUCT USED FOR UNKNOWN INDICATION
     Dosage: 5 MG, ONCE/SINGLE (STARTED 4 WEEKS AGO)
     Route: 065
     Dates: start: 202102

REACTIONS (10)
  - Asthenia [Recovered/Resolved]
  - Diarrhoea [Recovered/Resolved]
  - Back disorder [Unknown]
  - Influenza like illness [Recovered/Resolved]
  - Blood pressure increased [Unknown]
  - Hormone level abnormal [Unknown]
  - Dizziness [Not Recovered/Not Resolved]
  - Oral herpes [Unknown]
  - Thrombosis [Unknown]
  - Vaginal haemorrhage [Not Recovered/Not Resolved]

NARRATIVE: CASE EVENT DATE: 202102
